FAERS Safety Report 21917043 (Version 1)
Quarter: 2023Q1

REPORT INFORMATION
  Report Type: Spontaneous
  Country: US (occurrence: None)
  Receive Date: 20230126
  Receipt Date: 20230126
  Transmission Date: 20230418
  Serious: Yes (Other)
  Sender: FDA-Public Use
  Company Number: None

PATIENT
  Age: 48 Year
  Sex: Female

DRUGS (1)
  1. QUVIVIQ [Suspect]
     Active Substance: DARIDOREXANT
     Indication: Insomnia
     Dates: start: 20230109, end: 20230119

REACTIONS (4)
  - Depression [None]
  - Suicidal ideation [None]
  - Mental disorder [None]
  - Drug ineffective [None]

NARRATIVE: CASE EVENT DATE: 20230119
